FAERS Safety Report 6046425-2 (Version None)
Quarter: 2009Q1

REPORT INFORMATION
  Report Type: 
  Country: None (occurrence: None)
  Receive Date: 20090122
  Receipt Date: 20090115
  Transmission Date: 20090719
  Serious: Yes (Other)
  Sender: FDA-Public Use
  Company Number: CA-ASTRAZENECA-2009UW01480

PATIENT
  Age: 68 Year
  Sex: Male

DRUGS (10)
  1. CRESTOR [Suspect]
     Route: 048
     Dates: start: 20080101
  2. ALLOPURINOL [Concomitant]
  3. ALTACE [Concomitant]
  4. DARVON [Concomitant]
  5. FUROSEMIDE [Concomitant]
  6. METOPROLOL TARTRATE [Concomitant]
  7. MOTRIN [Concomitant]
  8. NORVASC [Concomitant]
  9. TRAMACET [Concomitant]
  10. TYLENOL W/ CODEINE NO. 3 [Concomitant]

REACTIONS (6)
  - ASTHENIA [None]
  - IMPAIRED WORK ABILITY [None]
  - MUSCLE ATROPHY [None]
  - MUSCULAR WEAKNESS [None]
  - MYALGIA [None]
  - WEIGHT DECREASED [None]
